FAERS Safety Report 9510010 (Version 1)
Quarter: 2013Q3

REPORT INFORMATION
  Report Type: Spontaneous
  Country: US (occurrence: US)
  Receive Date: 20130909
  Receipt Date: 20130909
  Transmission Date: 20140515
  Serious: No
  Sender: FDA-Public Use
  Company Number: US-BRISTOL-MYERS SQUIBB COMPANY-18867051

PATIENT
  Age: 50 Year
  Sex: Female
  Weight: 73.47 kg

DRUGS (1)
  1. ABILIFY TABS 5 MG [Suspect]
     Indication: BIPOLAR DISORDER
     Dosage: 1 DF: AND HALF TAB
     Dates: start: 20130425

REACTIONS (2)
  - Pain in extremity [Unknown]
  - Wrong technique in drug usage process [Unknown]
